FAERS Safety Report 6924655-2 (Version None)
Quarter: 2010Q3

REPORT INFORMATION
  Report Type: 
  Country: None (occurrence: None)
  Receive Date: 20100816
  Receipt Date: 20100806
  Transmission Date: 20110219
  Serious: Yes (Hospitalization)
  Sender: FDA-Public Use
  Company Number: 205361

PATIENT
  Age: 55 Year
  Sex: Female
  Weight: 69 kg

DRUGS (8)
  1. AVONEX [Suspect]
     Indication: MULTIPLE SCLEROSIS
     Route: 030
     Dates: start: 19980101, end: 20030901
  2. AVONEX [Suspect]
     Route: 030
     Dates: start: 20030901
  3. AMANTADINE [Concomitant]
     Indication: FATIGUE
     Dates: start: 19980101
  4. DETROL [Concomitant]
     Indication: POLLAKIURIA
     Dates: start: 19990101
  5. TOPROL-XL [Concomitant]
     Indication: PRODUCT USED FOR UNKNOWN INDICATION
  6. IMITREX [Concomitant]
     Indication: MIGRAINE
  7. BACTRIM [Concomitant]
     Indication: URINARY TRACT INFECTION
  8. ARIMIDEX [Concomitant]
     Indication: BREAST CANCER

REACTIONS (5)
  - BREAST CANCER STAGE II [None]
  - HYPERTENSION [None]
  - MIGRAINE [None]
  - NORMOCHROMIC NORMOCYTIC ANAEMIA [None]
  - PYREXIA [None]
